FAERS Safety Report 9371111 (Version 1)
Quarter: 2013Q2

REPORT INFORMATION
  Report Type: Spontaneous
  Country: TH (occurrence: TH)
  Receive Date: 20130627
  Receipt Date: 20130627
  Transmission Date: 20140414
  Serious: Yes (Hospitalization)
  Sender: FDA-Public Use
  Company Number: TH-ROCHE-1240575

PATIENT
  Age: 50 Year
  Sex: Female

DRUGS (6)
  1. RITUXIMAB [Suspect]
     Indication: TRANSPLANT REJECTION
     Dosage: SINGLE DOSE
     Route: 065
  2. IMMUNOGLOBULIN HUMAN NORMAL [Suspect]
     Indication: TRANSPLANT REJECTION
     Route: 042
  3. PROGRAFT [Suspect]
     Indication: PROPHYLAXIS AGAINST TRANSPLANT REJECTION
     Route: 048
  4. MYFORTIC [Suspect]
     Indication: PROPHYLAXIS AGAINST TRANSPLANT REJECTION
     Route: 048
  5. MYFORTIC [Suspect]
     Route: 048
  6. PREDNISOLONE [Suspect]
     Indication: PROPHYLAXIS AGAINST TRANSPLANT REJECTION
     Route: 048

REACTIONS (2)
  - Duodenal ulcer haemorrhage [Recovered/Resolved]
  - Anaemia [None]
